FAERS Safety Report 6279516-1 (Version None)
Quarter: 2009Q3

REPORT INFORMATION
  Report Type: 
  Country: None (occurrence: None)
  Receive Date: 20090721
  Receipt Date: 20090706
  Transmission Date: 20100115
  Serious: Yes (Life-Threatening, Hospitalization)
  Sender: FDA-Public Use
  Company Number: ADE2009-0725

PATIENT
  Age: 70 Year
  Sex: Male

DRUGS (3)
  1. LISINOPRIL [Suspect]
     Dosage: 25MG, DAILY
  2. LIDOCAINE [Suspect]
     Indication: LOCAL ANAESTHESIA
     Dosage: TOPICAL
     Route: 061
  3. PHENYLEPHRINE TOPICAL [Concomitant]

REACTIONS (8)
  - ANGIOEDEMA [None]
  - CARDIAC ARREST [None]
  - CONVULSION [None]
  - CYANOSIS [None]
  - PALLOR [None]
  - RENAL FAILURE ACUTE [None]
  - RESPIRATORY ARREST [None]
  - RESTLESSNESS [None]
